FAERS Safety Report 20960711 (Version 2)
Quarter: 2022Q3

REPORT INFORMATION
  Report Type: Spontaneous
  Country: AU (occurrence: AU)
  Receive Date: 20220615
  Receipt Date: 20220701
  Transmission Date: 20221026
  Serious: Yes (Hospitalization)
  Sender: FDA-Public Use
  Company Number: AU-TEVA-2022-AU-2045528

PATIENT
  Age: 7 Decade
  Sex: Female

DRUGS (17)
  1. PREGABALIN [Suspect]
     Active Substance: PREGABALIN
     Indication: Cutaneous calcification
     Dosage: 150 MG IN THE MORNING
     Route: 065
  2. PREGABALIN [Suspect]
     Active Substance: PREGABALIN
     Indication: Analgesic therapy
     Dosage: 300 MG IN THE NIGHT
     Route: 065
  3. SODIUM THIOSULFATE [Suspect]
     Active Substance: SODIUM THIOSULFATE
     Indication: Cutaneous calcification
     Dosage: 10%
     Route: 061
  4. SODIUM THIOSULFATE [Suspect]
     Active Substance: SODIUM THIOSULFATE
     Route: 026
  5. SODIUM THIOSULFATE [Suspect]
     Active Substance: SODIUM THIOSULFATE
     Dosage: DOSE: 250MG/ML SOLUTION WAS INJECTED, SOLUTION
     Route: 050
  6. TACROLIMUS [Suspect]
     Active Substance: TACROLIMUS
     Indication: Cutaneous calcification
     Dosage: 0.1%
     Route: 061
  7. PREDNISOLONE [Suspect]
     Active Substance: PREDNISOLONE
     Indication: Cutaneous calcification
     Dosage: WITH THE HIGHEST DOSE OF 50MG THAT WAS WEANED OVER 2-3 WEEKS, 50 MG
     Route: 048
  8. DILTIAZEM [Suspect]
     Active Substance: DILTIAZEM
     Indication: Cutaneous calcification
     Dosage: 360 MILLIGRAM DAILY;
     Route: 048
  9. COLCHICINE [Suspect]
     Active Substance: COLCHICINE
     Indication: Cutaneous calcification
     Dosage: 1.5 MILLIGRAM DAILY;
     Route: 065
  10. AMITRIPTYLINE [Suspect]
     Active Substance: AMITRIPTYLINE
     Indication: Cutaneous calcification
     Dosage: 75 MG IN THE NIGHT
     Route: 065
  11. AMITRIPTYLINE [Suspect]
     Active Substance: AMITRIPTYLINE
     Indication: Analgesic therapy
  12. CELECOXIB [Suspect]
     Active Substance: CELECOXIB
     Indication: Cutaneous calcification
     Dosage: 200 MILLIGRAM DAILY;
     Route: 065
  13. CELECOXIB [Suspect]
     Active Substance: CELECOXIB
     Indication: Analgesic therapy
  14. CLOBETASOL [Suspect]
     Active Substance: CLOBETASOL
     Indication: Cutaneous calcification
     Route: 061
  15. METHOTREXATE [Concomitant]
     Active Substance: METHOTREXATE
     Indication: Eosinophilic fasciitis
     Dosage: 30 MG ONCE A WEEK
     Route: 065
  16. CHLORHEXIDINE [Concomitant]
     Active Substance: CHLORHEXIDINE
     Indication: Cutaneous calcification
     Dosage: SOLUTION
     Route: 065
  17. LIDOCAINE [Concomitant]
     Active Substance: LIDOCAINE
     Indication: Nerve block
     Dosage: 5 ML
     Route: 065

REACTIONS (3)
  - Injection site reaction [Recovering/Resolving]
  - Staphylococcal infection [Recovering/Resolving]
  - Drug ineffective [Unknown]
